FAERS Safety Report 23182583 (Version 1)
Quarter: 2023Q4

REPORT INFORMATION
  Report Type: Spontaneous
  Country: CN (occurrence: CN)
  Receive Date: 20231114
  Receipt Date: 20231114
  Transmission Date: 20240110
  Serious: Yes (Hospitalization, Other)
  Sender: FDA-Public Use
  Company Number: CN-PFIZER INC-PV202300184168

PATIENT
  Age: 3 Year
  Sex: Male
  Weight: 13.5 kg

DRUGS (6)
  1. METHOTREXATE SODIUM [Suspect]
     Active Substance: METHOTREXATE SODIUM
     Indication: Chemotherapy
     Dosage: 2 G, 1X/DAY
     Dates: start: 20231016, end: 20231016
  2. METHOTREXATE SODIUM [Suspect]
     Active Substance: METHOTREXATE SODIUM
     Indication: Acute lymphocytic leukaemia
  3. METHOTREXATE SODIUM [Suspect]
     Active Substance: METHOTREXATE SODIUM
     Indication: Chemotherapy
     Dosage: 12.5 MG, 1X/DAY
     Route: 037
     Dates: start: 20231016, end: 20231016
  4. METHOTREXATE SODIUM [Suspect]
     Active Substance: METHOTREXATE SODIUM
     Indication: Acute lymphocytic leukaemia
  5. DEXAMETHASONE SODIUM PHOSPHATE [Concomitant]
     Active Substance: DEXAMETHASONE SODIUM PHOSPHATE
     Indication: Chemotherapy
     Dosage: 4 MG, 1X/DAY
     Route: 037
     Dates: start: 20231016, end: 20231016
  6. CYTARABINE [Concomitant]
     Active Substance: CYTARABINE
     Indication: Chemotherapy
     Dosage: 0.036 G, 1X/DAY
     Route: 037
     Dates: start: 20231016, end: 20231016

REACTIONS (4)
  - Renal impairment [Recovered/Resolved]
  - Liver injury [Recovering/Resolving]
  - Myelosuppression [Recovering/Resolving]
  - Stomatitis [Recovering/Resolving]

NARRATIVE: CASE EVENT DATE: 20231018
